FAERS Safety Report 24378971 (Version 1)
Quarter: 2024Q3

REPORT INFORMATION
  Report Type: Spontaneous
  Country: CN (occurrence: CN)
  Receive Date: 20240930
  Receipt Date: 20240930
  Transmission Date: 20241016
  Serious: Yes (Life-Threatening, Other)
  Sender: NOVARTIS
  Company Number: CN-002147023-NVSC2024CN192277

PATIENT
  Age: 52 Year
  Sex: Male
  Weight: 65 kg

DRUGS (3)
  1. TRAMETINIB [Suspect]
     Active Substance: TRAMETINIB
     Indication: Colon cancer
     Dosage: 2 MG, QD
     Route: 048
     Dates: start: 20240315, end: 20240813
  2. DABRAFENIB [Suspect]
     Active Substance: DABRAFENIB
     Indication: Colon cancer
     Dosage: 300 MG, QD
     Route: 048
     Dates: start: 20240315, end: 20240813
  3. DABRAFENIB [Suspect]
     Active Substance: DABRAFENIB
     Indication: Disease recurrence

REACTIONS (12)
  - Cardiac failure [Recovering/Resolving]
  - Mitral valve incompetence [Unknown]
  - Aortic valve incompetence [Unknown]
  - Tricuspid valve incompetence [Unknown]
  - Chest discomfort [Recovering/Resolving]
  - Ejection fraction decreased [Unknown]
  - Left ventricular enlargement [Unknown]
  - Left atrial enlargement [Unknown]
  - Cardiac disorder [Unknown]
  - Pulmonary arterial pressure increased [Unknown]
  - Left ventricular dysfunction [Unknown]
  - Tachypnoea [Recovering/Resolving]

NARRATIVE: CASE EVENT DATE: 20240605
